FAERS Safety Report 4781316-6 (Version None)
Quarter: 2005Q3

REPORT INFORMATION
  Report Type: 
  Country: None (occurrence: None)
  Receive Date: 20050914
  Receipt Date: 20050608
  Transmission Date: 20060218
  Serious: No
  Sender: FDA-Public Use
  Company Number: IND-AE-05-SAN-030

PATIENT
  Age: 71 Year
  Sex: Male
  Weight: 56.246 kg

DRUGS (1)
  1. SANCTURA [Suspect]
     Indication: HYPERTONIC BLADDER
     Dosage: 20MG, BID; ORAL
     Route: 048
     Dates: start: 20050601, end: 20050605

REACTIONS (2)
  - BLOOD PRESSURE INCREASED [None]
  - TACHYCARDIA [None]
